FAERS Safety Report 16804405 (Version 2)
Quarter: 2019Q4

REPORT INFORMATION
  Report Type: Spontaneous
  Country: US (occurrence: US)
  Receive Date: 20190913
  Receipt Date: 20191003
  Transmission Date: 20200122
  Serious: No
  Sender: FDA-Public Use
  Company Number: US-PFIZER INC-2019374417

PATIENT
  Age: 34 Year
  Sex: Female
  Weight: 58.96 kg

DRUGS (2)
  1. LYRICA [Suspect]
     Active Substance: PREGABALIN
     Indication: NERVE INJURY
     Dosage: 75 MG, 3X/DAY (BY MOUTH EVERY 8 HOURS)
     Route: 048
     Dates: start: 20190821
  2. LYRICA [Suspect]
     Active Substance: PREGABALIN
     Indication: INTERCOSTAL NEURALGIA
     Dosage: 75 MG, 2X/DAY (BY MOUTH EVERY 12 HOURS)
     Route: 048
     Dates: start: 2011

REACTIONS (8)
  - Vomiting [Unknown]
  - Somnolence [Unknown]
  - Insomnia [Not Recovered/Not Resolved]
  - Diarrhoea [Unknown]
  - Withdrawal syndrome [Unknown]
  - Tremor [Unknown]
  - Malaise [Unknown]
  - Headache [Unknown]

NARRATIVE: CASE EVENT DATE: 2011
